FAERS Safety Report 14186126 (Version 1)
Quarter: 2017Q4

REPORT INFORMATION
  Report Type: Spontaneous
  Country: US (occurrence: US)
  Receive Date: 20171114
  Receipt Date: 20171114
  Transmission Date: 20180321
  Serious: Yes (Other)
  Sender: FDA-Public Use
  Company Number: US-GLAXOSMITHKLINE-US2017GSK174090

PATIENT
  Age: 23 Year

DRUGS (4)
  1. ONFI [Suspect]
     Active Substance: CLOBAZAM
  2. LAMICTAL [Suspect]
     Active Substance: LAMOTRIGINE
  3. VIMPAT [Suspect]
     Active Substance: LACOSAMIDE
  4. KEPPRA [Suspect]
     Active Substance: LEVETIRACETAM

REACTIONS (9)
  - Vagal nerve stimulator implantation [Unknown]
  - Photophobia [Unknown]
  - Seizure [Not Recovered/Not Resolved]
  - Anxiety [Unknown]
  - Hallucination [Unknown]
  - Generalised tonic-clonic seizure [Unknown]
  - Eyelid myoclonus [Unknown]
  - Petit mal epilepsy [Unknown]
  - Insomnia [Unknown]

NARRATIVE: CASE EVENT DATE: 201603
